FAERS Safety Report 10962878 (Version 7)
Quarter: 2018Q2

REPORT INFORMATION
  Report Type: Spontaneous
  Country: US (occurrence: US)
  Receive Date: 20150327
  Receipt Date: 20180409
  Transmission Date: 20180711
  Serious: Yes (Other)
  Sender: FDA-Public Use
  Company Number: US-PFIZER INC-2015105318

PATIENT
  Age: 66 Year
  Sex: Male

DRUGS (10)
  1. HYDROCODONE [Concomitant]
     Active Substance: HYDROCODONE
     Dosage: 10.325 (AS REPORTED)
  2. LENTE [Concomitant]
     Dosage: UNK
  3. LOSARTAN. [Concomitant]
     Active Substance: LOSARTAN
     Dosage: UNK
  4. FLUOXETINE [Concomitant]
     Active Substance: FLUOXETINE HYDROCHLORIDE
     Dosage: UNK
  5. METOPROLOL. [Concomitant]
     Active Substance: METOPROLOL
     Dosage: UNK
  6. FUROSEMIDE. [Concomitant]
     Active Substance: FUROSEMIDE
     Dosage: UNK
  7. LEVOTHYROXINE. [Concomitant]
     Active Substance: LEVOTHYROXINE
     Dosage: UNK
  8. LYRICA [Suspect]
     Active Substance: PREGABALIN
     Dosage: UNK
     Dates: start: 201503
  9. HUMALOG [Concomitant]
     Active Substance: INSULIN LISPRO
     Dosage: PEN (AS REPORTED)
  10. LYRICA [Suspect]
     Active Substance: PREGABALIN
     Dosage: UNK
     Dates: start: 20150111, end: 20150115

REACTIONS (25)
  - Withdrawal syndrome [Not Recovered/Not Resolved]
  - Gait inability [Unknown]
  - Pain [Not Recovered/Not Resolved]
  - Thinking abnormal [Unknown]
  - Aggression [Recovered/Resolved]
  - Irritability [Unknown]
  - Disturbance in attention [Recovered/Resolved]
  - Muscle spasms [Recovered/Resolved]
  - Gait disturbance [Unknown]
  - Anger [Unknown]
  - Fall [Unknown]
  - Emotional disorder [Unknown]
  - Feeling abnormal [Unknown]
  - Asthenia [Unknown]
  - Depression [Recovered/Resolved]
  - Movement disorder [Unknown]
  - Pain in extremity [Unknown]
  - Petit mal epilepsy [Recovered/Resolved]
  - Suicidal ideation [Unknown]
  - Insomnia [Recovered/Resolved]
  - Malaise [Unknown]
  - Anal incontinence [Unknown]
  - Vomiting [Unknown]
  - Confusional state [Unknown]
  - Dyspnoea [Unknown]
